FAERS Safety Report 6526101-X (Version None)
Quarter: 2010Q1

REPORT INFORMATION
  Report Type: 
  Country: None (occurrence: None)
  Receive Date: 20100104
  Receipt Date: 20091221
  Transmission Date: 20100710
  Serious: Yes (Hospitalization, Other)
  Sender: FDA-Public Use
  Company Number: JP-PFIZER INC-2009313254

PATIENT
  Age: 23 Year
  Sex: Male

DRUGS (6)
  1. ETHOSUXIMIDE [Suspect]
     Indication: EPILEPSY
     Dosage: 500 MG, 1X/DAY
     Route: 065
  2. ETHOSUXIMIDE [Suspect]
     Dosage: 200 MG, 1X/DAY
     Route: 065
  3. VALPROATE SODIUM [Concomitant]
     Dosage: 400 MG, UNK
     Route: 065
  4. CLOBAZAM [Concomitant]
     Dosage: 25 MG, UNK
     Route: 065
  5. PHENYTOIN [Concomitant]
     Dosage: 120 MG, UNK
     Route: 065
  6. ZONISAMIDE [Concomitant]
     Dosage: 400 MG, UNK
     Route: 065

REACTIONS (3)
  - ELECTROENCEPHALOGRAM ABNORMAL [None]
  - HICCUPS [None]
  - SELECTIVE MUTISM [None]
